FAERS Safety Report 18768008 (Version 1)
Quarter: 2021Q1

REPORT INFORMATION
  Report Type: Spontaneous
  Country: PK (occurrence: PK)
  Receive Date: 20210121
  Receipt Date: 20210121
  Transmission Date: 20210419
  Serious: Yes (Other)
  Sender: FDA-Public Use
  Company Number: PK-SUN PHARMACEUTICAL INDUSTRIES LTD-2021R1-276534

PATIENT
  Age: 70 Year
  Sex: Female

DRUGS (7)
  1. ATENOLOL?CHLORTHALIDONE [Concomitant]
     Active Substance: ATENOLOL\CHLORTHALIDONE
     Indication: BLOOD PRESSURE MEASUREMENT
     Dosage: UNK, DAILY (50?25MG)
     Route: 065
  2. PRAVASTATIN. [Concomitant]
     Active Substance: PRAVASTATIN
     Indication: PRODUCT USED FOR UNKNOWN INDICATION
     Dosage: 20 MILLIGRAM, DAILY
     Route: 065
  3. POTASSIUM [Concomitant]
     Active Substance: POTASSIUM
     Indication: PRODUCT USED FOR UNKNOWN INDICATION
     Dosage: UNK, DAILY (40MEQ)
     Route: 065
  4. RIFAMPIN. [Interacting]
     Active Substance: RIFAMPIN
     Indication: LATENT TUBERCULOSIS
     Dosage: UNK
     Route: 065
  5. DICLOFENAC [Concomitant]
     Active Substance: DICLOFENAC
     Indication: PRODUCT USED FOR UNKNOWN INDICATION
     Dosage: UNK
     Route: 061
  6. ASPIRIN. [Concomitant]
     Active Substance: ASPIRIN
     Indication: PRODUCT USED FOR UNKNOWN INDICATION
     Dosage: 81 MILLIGRAM, DAILY
     Route: 065
  7. AMLODIPINE [Suspect]
     Active Substance: AMLODIPINE BESYLATE
     Indication: PRODUCT USED FOR UNKNOWN INDICATION
     Dosage: 10 MILLIGRAM, DAILY
     Route: 065

REACTIONS (2)
  - Hypertension [Unknown]
  - Drug interaction [Unknown]
